FAERS Safety Report 21807827 (Version 1)
Quarter: 2023Q1

REPORT INFORMATION
  Report Type: Spontaneous
  Country: BE (occurrence: BE)
  Receive Date: 20230103
  Receipt Date: 20230103
  Transmission Date: 20230417
  Serious: Yes (Disabling)
  Sender: FDA-Public Use
  Company Number: None

PATIENT
  Sex: Female

DRUGS (8)
  1. LEVOCETIRIZINE [Suspect]
     Active Substance: LEVOCETIRIZINE
     Indication: Rhinitis allergic
     Dosage: EVENING12/2021 -} 12/01/2022 = LOT 11YVJA
     Route: 048
     Dates: start: 20180101, end: 20220112
  2. FEXOFENADINE HYDROCHLORIDE [Concomitant]
     Active Substance: FEXOFENADINE HYDROCHLORIDE
     Indication: Rhinitis allergic
     Dosage: EVENING
     Route: 048
     Dates: start: 20210925, end: 20211010
  3. OMEPRAZOLE [Concomitant]
     Active Substance: OMEPRAZOLE
     Dosage: 1 DF, QD,MORNING
     Route: 048
     Dates: start: 2021
  4. BROMAZEPAM [Concomitant]
     Active Substance: BROMAZEPAM
     Indication: Insomnia
     Dosage: ALTERNATING WITH BROMAZEPAM
     Route: 048
     Dates: start: 202101
  5. BROMAZEPAM [Concomitant]
     Active Substance: BROMAZEPAM
     Indication: Sleep disorder
  6. RHINOSINUTAB [Concomitant]
     Indication: Rhinitis allergic
     Dosage: ONE TO THREE TIMES A DAY
     Route: 048
     Dates: start: 20211226, end: 20220105
  7. IBUPROFEN [Concomitant]
     Active Substance: IBUPROFEN
     Dosage: VARIABLE DOSAGE, UP TO 4X/DAY
     Dates: start: 202110
  8. BROMAZEPAM [Concomitant]
     Active Substance: BROMAZEPAM
     Dosage: ALTERNATING WITH LEXOTAN
     Route: 048
     Dates: start: 2017

REACTIONS (6)
  - Dark circles under eyes [Recovering/Resolving]
  - Fatigue [Recovering/Resolving]
  - Pallor [Recovering/Resolving]
  - Headache [Recovering/Resolving]
  - Eye pain [Recovering/Resolving]
  - Back pain [Recovering/Resolving]

NARRATIVE: CASE EVENT DATE: 20210112
